FAERS Safety Report 6022197-2 (Version None)
Quarter: 2008Q4

REPORT INFORMATION
  Report Type: 
  Country: None (occurrence: None)
  Receive Date: 20081229
  Receipt Date: 20081229
  Transmission Date: 20090506
  Serious: Yes (Hospitalization, Other)
  Sender: FDA-Public Use
  Company Number: JP-ABBOTT-08P-087-0494661-00

PATIENT
  Sex: Female
  Weight: 50.2 kg

DRUGS (14)
  1. SEVOFLURANE [Suspect]
     Indication: MAINTENANCE OF ANAESTHESIA
     Dosage: 0.7-4.3%
     Route: 055
  2. OPYSTAN [Concomitant]
     Indication: ANALGESIA
     Route: 042
     Dates: start: 20080818, end: 20080818
  3. OPYSTAN [Concomitant]
     Indication: SEDATION
  4. BREVIBLOC [Concomitant]
     Indication: TACHYCARDIA
     Route: 042
     Dates: start: 20080818, end: 20080818
  5. BREVIBLOC [Concomitant]
     Route: 042
     Dates: start: 20080818, end: 20080818
  6. PERDIPINE [Concomitant]
     Indication: BLOOD PRESSURE INCREASED
     Route: 042
     Dates: start: 20080818, end: 20080818
  7. ROPION [Concomitant]
     Indication: PYREXIA
     Route: 042
     Dates: start: 20080818, end: 20080818
  8. ROPION [Concomitant]
     Indication: ANALGESIA
  9. ESLAX (ROCURONIUM BROMIDE) [Concomitant]
     Indication: HYPOTONIA
     Route: 042
     Dates: start: 20080818, end: 20080818
  10. ESLAX (ROCURONIUM BROMIDE) [Concomitant]
     Route: 042
     Dates: start: 20080818, end: 20080818
  11. WARFARIN (WARFARIN POTASSIUM) [Concomitant]
     Indication: DEEP VEIN THROMBOSIS
  12. PROPOFOL [Concomitant]
     Indication: INDUCTION OF ANAESTHESIA
     Route: 042
     Dates: start: 20080818, end: 20080818
  13. ULTIVA [Concomitant]
     Indication: MAINTENANCE OF ANAESTHESIA
     Dosage: 0.15-0.45
     Route: 042
     Dates: start: 20080818, end: 20080818
  14. HEPARIN SODIUM [Concomitant]
     Indication: DEEP VEIN THROMBOSIS

REACTIONS (4)
  - BLOOD CREATINE PHOSPHOKINASE INCREASED [None]
  - BODY TEMPERATURE INCREASED [None]
  - CONVULSION [None]
  - DEPRESSED LEVEL OF CONSCIOUSNESS [None]
